FAERS Safety Report 21425737 (Version 1)
Quarter: 2022Q4

REPORT INFORMATION
  Report Type: Spontaneous
  Country: TR (occurrence: TR)
  Receive Date: 20221008
  Receipt Date: 20221008
  Transmission Date: 20230112
  Serious: Yes (Other)
  Sender: FDA-Public Use
  Company Number: TR-MICRO LABS LIMITED-ML2022-04957

PATIENT
  Age: 13 Year
  Sex: Female

DRUGS (2)
  1. BIMATOPROST [Suspect]
     Active Substance: BIMATOPROST
     Indication: Developmental glaucoma
     Dosage: ONCE A DAY IN BOTH EYES
  2. DORZOLAMIDE\TIMOLOL [Suspect]
     Active Substance: DORZOLAMIDE\TIMOLOL
     Indication: Developmental glaucoma

REACTIONS (1)
  - Drug ineffective [Unknown]
